FAERS Safety Report 9860686 (Version 1)
Quarter: 2014Q1

REPORT INFORMATION
  Report Type: Spontaneous
  Country: IN (occurrence: None)
  Receive Date: 20140130
  Receipt Date: 20140130
  Transmission Date: 20141002
  Serious: No
  Sender: FDA-Public Use
  Company Number: FK201400237

PATIENT
  Age: 52 Year
  Sex: Female

DRUGS (1)
  1. PACLITAXEL [Suspect]
     Indication: BREAST CANCER

REACTIONS (7)
  - Recall phenomenon [None]
  - Dysphagia [None]
  - Haematuria [None]
  - Rash generalised [None]
  - Stomatitis [None]
  - Stomatitis [None]
  - Rash pruritic [None]
